FAERS Safety Report 24350915 (Version 1)
Quarter: 2024Q3

REPORT INFORMATION
  Report Type: Spontaneous
  Country: CN (occurrence: CN)
  Receive Date: 20240923
  Receipt Date: 20240923
  Transmission Date: 20241017
  Serious: No
  Sender: ROCHE
  Company Number: CN-ROCHE-3536327

PATIENT
  Age: 64 Year
  Sex: Male
  Weight: 60.0 kg

DRUGS (4)
  1. HERCEPTIN [Suspect]
     Active Substance: TRASTUZUMAB
     Indication: Metastatic gastric cancer
     Dosage: COMBINATION CHEMOTHERAPY, 8 CYCLES
     Route: 041
     Dates: start: 20240221
  2. PACLITAXEL [Suspect]
     Active Substance: PACLITAXEL
     Indication: Metastatic gastric cancer
     Dosage: COMBINATION CHEMOTHERAPY, 8 CYCLES
     Route: 041
     Dates: start: 20240221
  3. RECOMBINANT HUMAN GRANULOCYTE COLONY STIMULATING FACTOR INJECTION (RHG [Concomitant]
     Dates: start: 20240229, end: 20240301
  4. CARBOPLATIN [Concomitant]
     Active Substance: CARBOPLATIN
     Indication: Metastatic gastric cancer

REACTIONS (2)
  - Myelosuppression [Recovered/Resolved]
  - Hypoaesthesia [Recovering/Resolving]

NARRATIVE: CASE EVENT DATE: 20240229
